FAERS Safety Report 21984506 (Version 1)
Quarter: 2023Q1

REPORT INFORMATION
  Report Type: Report from Study
  Country: US (occurrence: US)
  Receive Date: 20230213
  Receipt Date: 20230213
  Transmission Date: 20230418
  Serious: No
  Sender: FDA-Public Use
  Company Number: US-ORG100014127-2022000755

PATIENT
  Age: 82 Year
  Sex: Female

DRUGS (6)
  1. LYSODREN [Suspect]
     Active Substance: MITOTANE
     Indication: Cholangiocarcinoma
     Dosage: 02 TABLETS EVERY 8 HOURS
     Route: 048
     Dates: start: 20201020
  2. CARVEDILOL TAB 25MG [Concomitant]
     Indication: Product used for unknown indication
  3. DOXAZOSIN TAB 8MG [Concomitant]
     Indication: Product used for unknown indication
  4. HYDROCORT TAB 20MG [Concomitant]
     Indication: Product used for unknown indication
  5. LEVOXYL TAB 100MCG [Concomitant]
     Indication: Product used for unknown indication
  6. LOSARTAN POTTAB 100MG [Concomitant]
     Indication: Product used for unknown indication

REACTIONS (4)
  - Depression [Not Recovered/Not Resolved]
  - Decreased appetite [Not Recovered/Not Resolved]
  - Diarrhoea [Not Recovered/Not Resolved]
  - Off label use [Not Recovered/Not Resolved]

NARRATIVE: CASE EVENT DATE: 20201020
